FAERS Safety Report 9325549 (Version 5)
Quarter: 2014Q1

REPORT INFORMATION
  Report Type: Report from Study
  Country: BR (occurrence: BR)
  Receive Date: 20130604
  Receipt Date: 20140219
  Transmission Date: 20141002
  Serious: Yes (Life-Threatening, Hospitalization, Other)
  Sender: FDA-Public Use
  Company Number: PHHY2013BR030745

PATIENT
  Age: 67 Year
  Sex: Male
  Weight: 72 kg

DRUGS (16)
  1. XOLAIR [Suspect]
     Indication: BLOOD IMMUNOGLOBULIN E
     Dosage: 225 MG,  (1 AMPOULE) EVERY 15 DAYS
  2. XOLAIR [Suspect]
     Indication: ASTHMA
     Dosage: 1.5 DF, (1 AND HALF AMPOULE) EVERY 15 DAYS
  3. XOLAIR [Suspect]
     Indication: HYPERSENSITIVITY
  4. FORASEQ [Suspect]
     Indication: ASTHMA
     Dosage: 2 DF, QD (EVERY 12 HOURS, MORNING AND NIGHT)
  5. FORASEQ [Suspect]
     Indication: LUNG DISORDER
  6. ACETYLSALICYLIC ACID [Suspect]
     Indication: CARDIAC DISORDER
     Dosage: 2 DF, AT LUNCH
     Route: 048
     Dates: start: 201301
  7. CLOPIDOGREL [Suspect]
     Indication: CARDIAC DISORDER
     Dosage: UNK
  8. MONOCORDIL [Concomitant]
     Indication: CARDIAC DISORDER
     Dosage: 3 DF, 3 TIMES DAILY
     Route: 048
     Dates: start: 20130127
  9. ROSUVASTATIN [Concomitant]
     Dosage: 1 DF, AT NIGHT
     Dates: start: 201301
  10. ROSUVASTATIN CALCIUM [Concomitant]
     Indication: BLOOD CHOLESTEROL
     Dosage: 1 DF, QD
     Route: 048
     Dates: start: 201301
  11. ATROGREL [Concomitant]
     Indication: CARDIAC DISORDER
     Dosage: 1 DF, QD
     Route: 048
     Dates: start: 201301
  12. PREDNISONE [Concomitant]
     Indication: ALLERGIC RESPIRATORY DISEASE
     Dosage: 1 DF, PRN
     Route: 048
  13. PREDNISONE [Concomitant]
     Indication: LUNG DISORDER
  14. AEROLIN [Concomitant]
     Indication: LUNG DISORDER
     Dosage: UNK UKN, UNK
  15. OMEPRAZOLE [Concomitant]
     Indication: GASTROINTESTINAL DISORDER
     Dosage: UNK UKN, UNK
  16. MONTELAIR [Concomitant]
     Indication: LUNG DISORDER
     Dosage: 1 DF, QD

REACTIONS (25)
  - Apparent death [Recovering/Resolving]
  - Dyspnoea [Recovering/Resolving]
  - Dyspepsia [Recovering/Resolving]
  - Infarction [Recovered/Resolved]
  - Diverticulitis [Unknown]
  - Dysentery [Unknown]
  - Haematochezia [Unknown]
  - Haemorrhage [Unknown]
  - Yellow skin [Unknown]
  - Gait disturbance [Unknown]
  - Cardiac disorder [Recovering/Resolving]
  - Weight decreased [Recovering/Resolving]
  - Memory impairment [Not Recovered/Not Resolved]
  - Lung disorder [Unknown]
  - Hearing impaired [Recovering/Resolving]
  - Asthma [Recovering/Resolving]
  - Hypersensitivity [Not Recovered/Not Resolved]
  - Ear infection [Recovering/Resolving]
  - Ear discomfort [Recovering/Resolving]
  - Blood pressure decreased [Recovering/Resolving]
  - Wheezing [Recovering/Resolving]
  - Visual impairment [Not Recovered/Not Resolved]
  - Head discomfort [Unknown]
  - Multiple allergies [Unknown]
  - Fumbling [Unknown]
